FAERS Safety Report 16317398 (Version 1)
Quarter: 2019Q2

REPORT INFORMATION
  Report Type: Spontaneous
  Country: US (occurrence: US)
  Receive Date: 20190516
  Receipt Date: 20190516
  Transmission Date: 20190711
  Serious: Yes (Life-Threatening, Hospitalization)
  Sender: FDA-Public Use
  Company Number: US-TEVA-2019-US-1049597

PATIENT
  Age: 66 Year
  Sex: Female

DRUGS (7)
  1. TRAZODONE [Suspect]
     Active Substance: TRAZODONE HYDROCHLORIDE
     Indication: PRODUCT USED FOR UNKNOWN INDICATION
     Route: 065
  2. FLUOXETINE [Suspect]
     Active Substance: FLUOXETINE HYDROCHLORIDE
     Indication: PRODUCT USED FOR UNKNOWN INDICATION
     Route: 065
  3. LISINOPRIL. [Suspect]
     Active Substance: LISINOPRIL
     Indication: STRESS CARDIOMYOPATHY
     Route: 065
  4. MAGNESIUM [Suspect]
     Active Substance: MAGNESIUM
     Indication: PRODUCT USED FOR UNKNOWN INDICATION
     Route: 065
  5. METOPROLOL. [Suspect]
     Active Substance: METOPROLOL
     Indication: STRESS CARDIOMYOPATHY
     Route: 065
  6. BUPROPION. [Suspect]
     Active Substance: BUPROPION
     Indication: PRODUCT USED FOR UNKNOWN INDICATION
     Route: 065
  7. FUROSEMIDE. [Suspect]
     Active Substance: FUROSEMIDE
     Indication: STRESS CARDIOMYOPATHY
     Route: 065

REACTIONS (3)
  - Ventricular fibrillation [Recovered/Resolved]
  - Electrocardiogram QT prolonged [Unknown]
  - Torsade de pointes [Unknown]
